FAERS Safety Report 13995078 (Version 1)
Quarter: 2017Q3

REPORT INFORMATION
  Report Type: Spontaneous
  Country: US (occurrence: None)
  Receive Date: 20170921
  Receipt Date: 20170921
  Transmission Date: 20171128
  Serious: Yes (Hospitalization)
  Sender: FDA-Public Use
  Company Number: None

PATIENT
  Age: 37 Year
  Sex: Female
  Weight: 68.04 kg

DRUGS (1)
  1. OMEPRAZOLE 20MG CAPSULE [Suspect]
     Active Substance: OMEPRAZOLE
     Indication: ULCER
     Dosage: 1 PILL  1 A DAY NOT TAKEN IT

REACTIONS (1)
  - Abdominal pain upper [None]

NARRATIVE: CASE EVENT DATE: 20170909
